FAERS Safety Report 7328924-6 (Version None)
Quarter: 2011Q1

REPORT INFORMATION
  Report Type: 
  Country: None (occurrence: None)
  Receive Date: 20110303
  Receipt Date: 20110223
  Transmission Date: 20110831
  Serious: No
  Sender: FDA-Public Use
  Company Number: JP-B.I. PHARMACEUTICALS,INC./RIDGEFIELD-2011-BP-05128YA

PATIENT
  Age: 75 Year
  Sex: Male

DRUGS (3)
  1. HARNAL (TAMSULOSIN) ORODISPERSABLE CR [Suspect]
     Indication: BENIGN PROSTATIC HYPERPLASIA
     Dosage: 0.2 MG
     Route: 048
     Dates: start: 20100101
  2. LISINOPRIL [Concomitant]
     Route: 048
     Dates: start: 20100101
  3. NORVASC [Concomitant]
     Route: 048
     Dates: start: 20100101

REACTIONS (1)
  - DYSURIA [None]
